FAERS Safety Report 11263461 (Version 12)
Quarter: 2019Q1

REPORT INFORMATION
  Report Type: Report from Study
  Country: CA (occurrence: CA)
  Receive Date: 20150713
  Receipt Date: 20190216
  Transmission Date: 20190417
  Serious: Yes (Life-Threatening, Hospitalization, Other)
  Sender: FDA-Public Use
  Company Number: CA-ROCHE-1603586

PATIENT
  Age: 80 Year
  Sex: Male

DRUGS (10)
  1. ESBRIET [Suspect]
     Active Substance: PIRFENIDONE
     Route: 048
     Dates: start: 20180711
  2. ESBRIET [Suspect]
     Active Substance: PIRFENIDONE
     Route: 048
     Dates: start: 20150126
  3. ESBRIET [Suspect]
     Active Substance: PIRFENIDONE
     Route: 048
     Dates: start: 2016, end: 201602
  4. ESBRIET [Suspect]
     Active Substance: PIRFENIDONE
     Route: 048
     Dates: start: 20150202
  5. ESBRIET [Suspect]
     Active Substance: PIRFENIDONE
     Route: 048
     Dates: start: 20150218, end: 2016
  6. LIPITOR [Concomitant]
     Active Substance: ATORVASTATIN CALCIUM
     Route: 065
  7. PANTOPRAZOLE [Concomitant]
     Active Substance: PANTOPRAZOLE
     Route: 065
  8. DOXAZOSIN [Concomitant]
     Active Substance: DOXAZOSIN\DOXAZOSIN MESYLATE
     Route: 065
  9. ESBRIET [Suspect]
     Active Substance: PIRFENIDONE
     Route: 048
     Dates: start: 20170130
  10. ESBRIET [Suspect]
     Active Substance: PIRFENIDONE
     Indication: IDIOPATHIC PULMONARY FIBROSIS
     Route: 048
     Dates: start: 20150119

REACTIONS (31)
  - Cerebrovascular accident [Not Recovered/Not Resolved]
  - Oxygen saturation decreased [Unknown]
  - Confusional state [Not Recovered/Not Resolved]
  - Chest X-ray abnormal [Unknown]
  - Dementia [Not Recovered/Not Resolved]
  - Depressed mood [Unknown]
  - Fatigue [Not Recovered/Not Resolved]
  - Apathy [Not Recovered/Not Resolved]
  - Lymphadenopathy mediastinal [Unknown]
  - Transient ischaemic attack [Unknown]
  - Cerebrovascular accident [Unknown]
  - Pathological fracture [Unknown]
  - Decreased appetite [Not Recovered/Not Resolved]
  - Depression [Unknown]
  - Granuloma [Unknown]
  - Hiatus hernia [Unknown]
  - Spinal osteoarthritis [Unknown]
  - Social avoidant behaviour [Unknown]
  - Pulmonary function test abnormal [Unknown]
  - Neoplasm [Unknown]
  - Thyroid disorder [Unknown]
  - Amnesia [Not Recovered/Not Resolved]
  - Decreased interest [Not Recovered/Not Resolved]
  - Nausea [Recovered/Resolved]
  - Increased upper airway secretion [Unknown]
  - Cardiomegaly [Unknown]
  - Aortic arteriosclerosis [Unknown]
  - Arteriosclerosis coronary artery [Unknown]
  - Weight decreased [Recovered/Resolved]
  - Heart rate increased [Unknown]
  - Oesophageal dilatation [Unknown]

NARRATIVE: CASE EVENT DATE: 201503
